FAERS Safety Report 6018329-2 (Version None)
Quarter: 2008Q4

REPORT INFORMATION
  Report Type: 
  Country: None (occurrence: None)
  Receive Date: 20081223
  Receipt Date: 20081219
  Transmission Date: 20090506
  Serious: Yes (Other)
  Sender: FDA-Public Use
  Company Number: US-ELI_LILLY_AND_COMPANY-US200812005227

PATIENT
  Sex: Female
  Weight: 73.469 kg

DRUGS (10)
  1. BYETTA [Suspect]
     Indication: TYPE 2 DIABETES MELLITUS
     Dosage: 5 UG, 2/D
     Route: 058
     Dates: start: 20071001, end: 20071101
  2. BYETTA [Suspect]
     Dosage: 10 UG, 2/D
     Route: 058
     Dates: start: 20071101, end: 20081201
  3. BYETTA [Suspect]
     Dosage: 10 UG, EACH EVENING
     Route: 058
     Dates: start: 20081201, end: 20081219
  4. METOPROLOL [Concomitant]
     Indication: BLOOD PRESSURE INCREASED
  5. DIOVAN HCT [Concomitant]
     Indication: BLOOD PRESSURE INCREASED
  6. PROTONIX [Concomitant]
     Indication: GASTROOESOPHAGEAL REFLUX DISEASE
  7. METFORMIN HCL [Concomitant]
     Indication: TYPE 2 DIABETES MELLITUS
  8. HUMULIN /00646002/ [Concomitant]
     Indication: TYPE 2 DIABETES MELLITUS
  9. ISOSORBIDE DINITRATE [Concomitant]
     Indication: BLOOD PRESSURE INCREASED
  10. LEVOTHYROXINE SODIUM [Concomitant]
     Indication: THYROID DISORDER

REACTIONS (7)
  - BLOOD GLUCOSE DECREASED [None]
  - BREAST CYST [None]
  - DIARRHOEA [None]
  - MALAISE [None]
  - NAUSEA [None]
  - OVARIAN CYST [None]
  - VISUAL ACUITY REDUCED [None]
